FAERS Safety Report 4721663-7 (Version None)
Quarter: 2005Q3

REPORT INFORMATION
  Report Type: 
  Country: None (occurrence: None)
  Receive Date: 20050721
  Receipt Date: 20050204
  Transmission Date: 20060218
  Serious: Yes (Other)
  Sender: FDA-Public Use
  Company Number: US-BRISTOL-MYERS SQUIBB COMPANY-12857132

PATIENT
  Age: 68 Year
  Sex: Female
  Weight: 63 kg

DRUGS (3)
  1. COUMADIN [Suspect]
     Indication: TRANSIENT ISCHAEMIC ATTACK
     Dates: start: 19850101
  2. LIPITOR [Concomitant]
  3. AVAPRO [Concomitant]

REACTIONS (1)
  - CEREBROVASCULAR ACCIDENT [None]
